FAERS Safety Report 6539274-X (Version None)
Quarter: 2010Q1

REPORT INFORMATION
  Report Type: 
  Country: None (occurrence: None)
  Receive Date: 20100115
  Receipt Date: 20100111
  Transmission Date: 20100710
  Serious: Yes (Hospitalization)
  Sender: FDA-Public Use
  Company Number: DE-ROCHE-579171

PATIENT
  Age: 67 Year
  Sex: Male
  Weight: 81 kg

DRUGS (16)
  1. VALGANCICLOVIR HCL [Suspect]
     Dosage: FREQUENCY REPORTED AS 1-0-0.
     Route: 048
     Dates: start: 20070728
  2. PROGRAF [Concomitant]
  3. MYCOPHENOLATE MOFETIL [Concomitant]
     Dates: end: 20080801
  4. PREDNISOLONE [Concomitant]
  5. METOPROLOL [Concomitant]
  6. ESOMEPRAZOLE [Concomitant]
     Dosage: DRUG NAME REPORTED AS ESOMEPRAZOL.
  7. RAMIPRIL [Concomitant]
  8. MOXONIDINE [Concomitant]
     Dosage: DRUG NAME REPORTED AS MOXONIDIN
  9. AMLODIPINE [Concomitant]
  10. FUROSEMID [Concomitant]
  11. VALSARTAN [Concomitant]
  12. BONDIOL [Concomitant]
  13. MIMPARA [Concomitant]
  14. FERRO SANOL [Concomitant]
  15. LEVOTHYROXINE SODIUM [Concomitant]
  16. OMEPRAZOL [Concomitant]

REACTIONS (2)
  - PRESYNCOPE [None]
  - PULMONARY EMBOLISM [None]
